FAERS Safety Report 5634110-8 (Version None)
Quarter: 2008Q1

REPORT INFORMATION
  Report Type: 
  Country: None (occurrence: None)
  Receive Date: 20080131
  Receipt Date: 20071219
  Transmission Date: 20080703
  Serious: No
  Sender: FDA-Public Use
  Company Number: PHEH2007US15981

PATIENT
  Sex: Female

DRUGS (6)
  1. TEKTURNA [Suspect]
     Indication: HYPERTENSION
     Dosage: 150 MG, QD
  2. LOTREL [Suspect]
     Indication: HYPERTENSION
     Dates: end: 20071210
  3. COREG [Suspect]
     Dosage: 20 MG
     Dates: end: 20071210
  4. AMBIEN [Suspect]
     Indication: INSOMNIA
     Dates: end: 20071210
  5. XANAX [Concomitant]
  6. BONIVA [Concomitant]

REACTIONS (5)
  - BLOOD PRESSURE INADEQUATELY CONTROLLED [None]
  - COUGH [None]
  - HEART RATE INCREASED [None]
  - VISION BLURRED [None]
  - VISUAL ACUITY REDUCED [None]
